FAERS Safety Report 8811498 (Version 2)
Quarter: 2012Q4

REPORT INFORMATION
  Report Type: Spontaneous
  Country: US (occurrence: None)
  Receive Date: 20120921
  Receipt Date: 20120927
  Transmission Date: 20130627
  Serious: Yes (Other)
  Sender: FDA-Public Use
  Company Number: 2012AP003002

PATIENT
  Age: 68 Year
  Sex: Male

DRUGS (4)
  1. CARBIDOPA + LEVODOPA [Suspect]
     Indication: PARKINSON^S DISEASE
  2. DONEPEZIL HYDROCHLORIDE [Suspect]
  3. QUETIAPINE FUMARATE [Suspect]
     Indication: DRUG USE FOR UNKNOWN INDICATION
  4. MIDODRINE [Concomitant]

REACTIONS (5)
  - Hallucination, visual [None]
  - Delusion of replacement [None]
  - Delusion of replacement [None]
  - Cognitive disorder [None]
  - Pneumonia aspiration [None]
